FAERS Safety Report 10542658 (Version 2)
Quarter: 2014Q4

REPORT INFORMATION
  Report Type: Spontaneous
  Country: JP (occurrence: JP)
  Receive Date: 20141027
  Receipt Date: 20141127
  Transmission Date: 20150529
  Serious: Yes (Other)
  Sender: FDA-Public Use
  Company Number: JP-BRISTOL-MYERS SQUIBB COMPANY-21526348

PATIENT
  Age: 59 Year
  Sex: Female

DRUGS (3)
  1. SENNA LEAF [Concomitant]
     Active Substance: SENNA LEAF
  2. ABILIFY [Suspect]
     Active Substance: ARIPIPRAZOLE
     Dosage: STRENGTH: 3MG
     Route: 048
  3. SENNA PODS [Concomitant]
     Active Substance: SENNA PODS

REACTIONS (1)
  - Retinal haemorrhage [Unknown]
